FAERS Safety Report 16748265 (Version 2)
Quarter: 2019Q3

REPORT INFORMATION
  Report Type: Spontaneous
  Country: JP (occurrence: JP)
  Receive Date: 20190827
  Receipt Date: 20190919
  Transmission Date: 20191005
  Serious: Yes (Other)
  Sender: FDA-Public Use
  Company Number: JP-009507513-1908JPN009919

PATIENT
  Age: 43 Year
  Sex: Male
  Weight: 76.3 kg

DRUGS (20)
  1. AMIODARONE HYDROCHLORIDE. [Suspect]
     Active Substance: AMIODARONE HYDROCHLORIDE
     Indication: VENTRICULAR TACHYCARDIA
     Dosage: DAILY DOSE 600 MG
     Route: 042
     Dates: start: 20190811, end: 20190823
  2. CORETEC [Concomitant]
     Indication: CARDIAC FAILURE
     Dosage: 0.1-0.3G
     Route: 042
     Dates: start: 20190730, end: 20190907
  3. TEDIZOLID PHOSPHATE. [Suspect]
     Active Substance: TEDIZOLID PHOSPHATE
     Indication: SOFT TISSUE INFECTION
     Dosage: 200 MG, QD
     Route: 042
     Dates: start: 20190815, end: 20190820
  4. FENTANYL. [Concomitant]
     Active Substance: FENTANYL
     Indication: ANALGESIC THERAPY
     Dosage: 0.1-0.7MG/DAY
     Route: 042
     Dates: start: 20190730, end: 20190911
  5. PLATELETS [Concomitant]
     Active Substance: HUMAN PLATELET, ALLOGENIC
     Dosage: UNK
     Dates: start: 20190730
  6. BLOOD, PLASMA [Concomitant]
     Active Substance: HUMAN PLASMA
     Dosage: UNK
     Dates: start: 20190730
  7. OMEPRAZOLE. [Concomitant]
     Active Substance: OMEPRAZOLE
     Indication: PROPHYLAXIS AGAINST GASTROINTESTINAL ULCER
     Dosage: 20 MG, BID
     Dates: start: 20190730, end: 20190911
  8. KETALAR [Concomitant]
     Active Substance: KETAMINE HYDROCHLORIDE
     Indication: SEDATION
     Dosage: DAILY DOSE 10 MG
     Route: 042
     Dates: start: 20190730, end: 20190911
  9. BLOOD CELLS, RED [Concomitant]
     Active Substance: HUMAN RED BLOOD CELL
     Dosage: UNK
     Dates: start: 20190730
  10. NOREPINEPHRINE BITARTRATE. [Concomitant]
     Active Substance: NOREPINEPHRINE BITARTRATE
     Indication: BLOOD PRESSURE DECREASED
     Dosage: 0.1-0.3G
     Route: 042
     Dates: start: 20190730, end: 20190911
  11. PROPOFOL. [Concomitant]
     Active Substance: PROPOFOL
     Indication: SEDATION
     Dosage: 1MG/KG/HR
     Route: 042
     Dates: start: 20190730, end: 20190911
  12. HEPARIN [Concomitant]
     Active Substance: HEPARIN SODIUM
     Indication: ANTICOAGULANT THERAPY
     Dosage: 100-600U/HR
     Route: 042
     Dates: start: 20190802, end: 20190831
  13. SIGMART [Concomitant]
     Active Substance: NICORANDIL
     Indication: CARDIAC FAILURE
     Dosage: 2 MG/HR
     Route: 042
     Dates: start: 20190730, end: 20190911
  14. BISOPROLOL [Concomitant]
     Active Substance: BISOPROLOL
     Indication: ARRHYTHMIA
     Dosage: 2.5 MG, QD
     Route: 048
     Dates: start: 20190809, end: 20190819
  15. ZOSYN [Concomitant]
     Active Substance: PIPERACILLIN SODIUM\TAZOBACTAM SODIUM
     Indication: PNEUMONIA
  16. PRECEDEX [Concomitant]
     Active Substance: DEXMEDETOMIDINE HYDROCHLORIDE
     Indication: SEDATION
     Dosage: 0.1-0.4MG/KG/HR
     Route: 042
     Dates: start: 20190730, end: 20190911
  17. NAFAMOSTAT [Concomitant]
     Active Substance: NAFAMOSTAT
     Indication: ANTICOAGULANT THERAPY
     Dosage: 30 MG/HR
     Route: 042
     Dates: start: 20190731, end: 20190911
  18. MORPHINE [Concomitant]
     Active Substance: MORPHINE
     Indication: SEDATION
     Dosage: 10-20MG/DAY
     Route: 042
     Dates: start: 20190810, end: 20190819
  19. ZOSYN [Concomitant]
     Active Substance: PIPERACILLIN SODIUM\TAZOBACTAM SODIUM
     Indication: SEPSIS
     Dosage: 3.375 G, TID
     Route: 042
     Dates: start: 20190804, end: 20190822
  20. BISONO [Concomitant]
     Active Substance: BISOPROLOL
     Indication: ARRHYTHMIA
     Dosage: DAILY DOSE 4 MG
     Route: 062
     Dates: start: 20190809, end: 20190819

REACTIONS (5)
  - Agranulocytosis [Recovering/Resolving]
  - White blood cell count decreased [Recovering/Resolving]
  - Pancytopenia [Recovering/Resolving]
  - Platelet count decreased [Recovering/Resolving]
  - Neutrophil count decreased [Recovering/Resolving]

NARRATIVE: CASE EVENT DATE: 20190818
